FAERS Safety Report 9647758 (Version 1)
Quarter: 2013Q4

REPORT INFORMATION
  Report Type: Spontaneous
  Country: US (occurrence: None)
  Receive Date: 20131024
  Receipt Date: 20131024
  Transmission Date: 20140711
  Serious: Yes (Other)
  Sender: FDA-Public Use
  Company Number: None

PATIENT
  Age: 72 Year
  Sex: Female
  Weight: 68.04 kg

DRUGS (2)
  1. PATANOL [Suspect]
     Indication: EYE ALLERGY
     Dosage: 2 DROPS EACH EYE TWICE DAILY INTO THE EYE
     Route: 047
     Dates: start: 20130522, end: 20130809
  2. ONE A DAY MULTI VITAMIN [Concomitant]

REACTIONS (6)
  - Vision blurred [None]
  - Eye irritation [None]
  - Eye disorder [None]
  - Headache [None]
  - Photophobia [None]
  - Impaired driving ability [None]
